FAERS Safety Report 5802868-0 (Version None)
Quarter: 2008Q3

REPORT INFORMATION
  Report Type: 
  Country: None (occurrence: None)
  Receive Date: 20080708
  Receipt Date: 20080625
  Transmission Date: 20090109
  Serious: Yes (Hospitalization)
  Sender: FDA-Public Use
  Company Number: PHHO2006CA07189

PATIENT
  Sex: Male

DRUGS (4)
  1. TYZEKA [Suspect]
     Indication: HEPATITIS B
     Dosage: 600 MG, UNK
     Route: 048
     Dates: start: 20060119
  2. ADEFOVIR DIPIVOXIL KIT [Suspect]
     Dosage: UNK, UNK
     Dates: start: 20050310
  3. MULTI-VITAMINS [Concomitant]
  4. VITAMIN B COMPLEX CAP [Concomitant]

REACTIONS (6)
  - ABDOMINAL DISTENSION [None]
  - ABDOMINAL PAIN [None]
  - HYPERAMYLASAEMIA [None]
  - PANCREATITIS ACUTE [None]
  - POLYP [None]
  - VOMITING [None]
